FAERS Safety Report 5321396-2 (Version None)
Quarter: 2007Q2

REPORT INFORMATION
  Report Type: 
  Country: None (occurrence: None)
  Receive Date: 20070507
  Receipt Date: 20070507
  Transmission Date: 20071010
  Serious: No
  Sender: FDA-Public Use
  Company Number: None

PATIENT
  Age: 48 Year
  Sex: Male

DRUGS (3)
  1. NAFCILLIN SODIUM [Suspect]
     Indication: ABSCESS
     Dosage: 2GM OTHER IV
     Route: 042
     Dates: start: 20060816, end: 20060820
  2. NAFCILLIN SODIUM [Suspect]
     Indication: CELLULITIS
     Dosage: 2GM OTHER IV
     Route: 042
     Dates: start: 20060816, end: 20060820
  3. NAFCILLIN SODIUM [Suspect]
     Indication: SEPSIS
     Dosage: 2GM OTHER IV
     Route: 042
     Dates: start: 20060816, end: 20060820

REACTIONS (2)
  - RENAL FAILURE ACUTE [None]
  - SEPSIS [None]
